FAERS Safety Report 4508487-0 (Version None)
Quarter: 2004Q4

REPORT INFORMATION
  Report Type: 
  Country: None (occurrence: None)
  Receive Date: 20041123
  Receipt Date: 20040303
  Transmission Date: 20050328
  Serious: No
  Sender: FDA-Public Use
  Company Number: US-GLAXOSMITHKLINE-A0501052A

PATIENT
  Age: 44 Year
  Sex: Female

DRUGS (3)
  1. WELLBUTRIN SR [Suspect]
     Indication: ILL-DEFINED DISORDER
     Dosage: 150MG TWICE PER DAY
     Route: 048
     Dates: start: 20040101, end: 20040215
  2. AMOXICILLIN [Concomitant]
  3. GUAIFEN [Concomitant]

REACTIONS (2)
  - AGITATION [None]
  - RASH MACULAR [None]
